FAERS Safety Report 17921116 (Version 1)
Quarter: 2020Q2

REPORT INFORMATION
  Report Type: Spontaneous
  Country: KR (occurrence: KR)
  Receive Date: 20200622
  Receipt Date: 20200622
  Transmission Date: 20200714
  Serious: Yes (Life-Threatening, Hospitalization)
  Sender: FDA-Public Use
  Company Number: KR-STRIDES ARCOLAB LIMITED-2020SP007164

PATIENT
  Age: 67 Year
  Sex: Female

DRUGS (2)
  1. ZOLPIDEM [Suspect]
     Active Substance: ZOLPIDEM TARTRATE
     Indication: PRODUCT USED FOR UNKNOWN INDICATION
     Dosage: INGESTED OVER 100 TABLETS OF 10MG ZOLPIDEM
     Route: 048
  2. FLUNITRAZEPAM [Interacting]
     Active Substance: FLUNITRAZEPAM
     Indication: PRODUCT USED FOR UNKNOWN INDICATION
     Dosage: UNK
     Route: 065

REACTIONS (10)
  - Drug interaction [Unknown]
  - Bundle branch block right [Unknown]
  - Coma [Recovered/Resolved]
  - Overdose [Unknown]
  - Ventricular tachycardia [Unknown]
  - Mental status changes [Recovered/Resolved]
  - Torsade de pointes [Unknown]
  - Respiratory acidosis [Unknown]
  - Hypoxia [Unknown]
  - Electrocardiogram QT prolonged [Recovered/Resolved]
